FAERS Safety Report 5484755-3 (Version None)
Quarter: 2007Q4

REPORT INFORMATION
  Report Type: 
  Country: None (occurrence: None)
  Receive Date: 20071010
  Receipt Date: 20071005
  Transmission Date: 20080405
  Serious: Yes (Hospitalization)
  Sender: FDA-Public Use
  Company Number: GRT 2007-12996

PATIENT
  Age: 82 Year
  Sex: Female
  Weight: 65 kg

DRUGS (5)
  1. LIDOCAINE [Suspect]
     Indication: POST HERPETIC NEURALGIA
     Dosage: 1 PATCH A DAY
     Dates: start: 20070528, end: 20070821
  2. MARIVARIN [Concomitant]
  3. ULTOP [Concomitant]
  4. LANITOP [Concomitant]
  5. LEKADOL [Concomitant]

REACTIONS (3)
  - ASCITES [None]
  - CARDIAC FAILURE [None]
  - COLONIC POLYP [None]
